FAERS Safety Report 14361501 (Version 1)
Quarter: 2018Q1

REPORT INFORMATION
  Report Type: Spontaneous
  Country: US (occurrence: US)
  Receive Date: 20180108
  Receipt Date: 20180108
  Transmission Date: 20180509
  Serious: No
  Sender: FDA-Public Use
  Company Number: US-MACLEODS PHARMACEUTICALS US LTD-MAC2017006728

PATIENT

DRUGS (1)
  1. CELECOXIB. [Suspect]
     Active Substance: CELECOXIB
     Indication: PRODUCT USED FOR UNKNOWN INDICATION
     Dosage: 200 MG, UNK
     Route: 065

REACTIONS (7)
  - Malaise [Unknown]
  - Heart rate increased [Unknown]
  - Muscle spasms [Unknown]
  - Heart rate irregular [Unknown]
  - Tremor [Unknown]
  - Syncope [Unknown]
  - Dizziness [Unknown]
